FAERS Safety Report 5450916-2 (Version None)
Quarter: 2007Q3

REPORT INFORMATION
  Report Type: 
  Country: None (occurrence: None)
  Receive Date: 20070911
  Receipt Date: 20070827
  Transmission Date: 20080115
  Serious: Yes (Hospitalization)
  Sender: FDA-Public Use
  Company Number: 2007VX000403

PATIENT
  Age: 47 Year
  Sex: Female
  Weight: 38.1022 kg

DRUGS (5)
  1. INTERFERON ALFACON-1 [Suspect]
     Indication: HEPATITIS C
     Dosage: 9 UG; TIW; SC
     Route: 058
     Dates: start: 20070122, end: 20070201
  2. RIBAVIRIN [Concomitant]
  3. LORCET-HD [Concomitant]
  4. XANAX [Concomitant]
  5. CLARINEX [Concomitant]

REACTIONS (7)
  - HAEMATEMESIS [None]
  - IMMUNE SYSTEM DISORDER [None]
  - INFLUENZA LIKE ILLNESS [None]
  - PNEUMONIA [None]
  - STOMACH DISCOMFORT [None]
  - VOMITING [None]
  - WEIGHT DECREASED [None]
